FAERS Safety Report 7138452-9 (Version None)
Quarter: 2010Q4

REPORT INFORMATION
  Report Type: 
  Country: None (occurrence: None)
  Receive Date: 20101206
  Receipt Date: 20101125
  Transmission Date: 20110411
  Serious: Yes (Hospitalization, Disabling, Other)
  Sender: FDA-Public Use
  Company Number: PHHY2009CA17701

PATIENT
  Sex: Female

DRUGS (2)
  1. SANDOSTATIN LAR [Suspect]
     Indication: CARCINOID TUMOUR OF THE PANCREAS
     Dosage: 60 MG, EVERY 2 WEEKS
     Route: 030
     Dates: start: 20051209
  2. SANDOSTATIN LAR [Suspect]
     Indication: METASTATIC CARCINOID TUMOUR

REACTIONS (20)
  - ABDOMINAL DISCOMFORT [None]
  - ABDOMINAL PAIN [None]
  - ABDOMINAL PAIN UPPER [None]
  - AMNESIA [None]
  - ASCITES [None]
  - CACHEXIA [None]
  - DIARRHOEA [None]
  - DYSKINESIA [None]
  - ERYTHEMA [None]
  - GASTROINTESTINAL DISORDER [None]
  - HEADACHE [None]
  - HYPOPHAGIA [None]
  - INJECTION SITE PAIN [None]
  - INJECTION SITE SWELLING [None]
  - NAUSEA [None]
  - OEDEMA PERIPHERAL [None]
  - SCAR [None]
  - SKIN DISORDER [None]
  - SKIN HYPERTROPHY [None]
  - WAIST CIRCUMFERENCE INCREASED [None]
